FAERS Safety Report 12158094 (Version 1)
Quarter: 2016Q1

REPORT INFORMATION
  Report Type: Spontaneous
  Country: US (occurrence: None)
  Receive Date: 20160307
  Receipt Date: 20160307
  Transmission Date: 20160526
  Serious: Yes (Disabling)
  Sender: FDA-Public Use
  Company Number: None

PATIENT
  Age: 68 Year
  Sex: Female
  Weight: 68.04 kg

DRUGS (6)
  1. RESTASIS [Suspect]
     Active Substance: CYCLOSPORINE
     Indication: DRY EYE
     Dosage: TWO DROPS DAILY, TWICE DAILY, INTO THE EYE
  2. CELEXA [Concomitant]
     Active Substance: CITALOPRAM HYDROBROMIDE
  3. VITAMIN D [Concomitant]
     Active Substance: CHOLECALCIFEROL
  4. FISH OIL SUPPLEMENT [Concomitant]
     Active Substance: FISH OIL
  5. THERATEARS [Concomitant]
     Active Substance: CARBOXYMETHYLCELLULOSE SODIUM
  6. GABAPENTIN. [Concomitant]
     Active Substance: GABAPENTIN

REACTIONS (7)
  - Facial pain [None]
  - Headache [None]
  - Eye pain [None]
  - Asthenopia [None]
  - Activities of daily living impaired [None]
  - Neck pain [None]
  - Drug ineffective [None]
